FAERS Safety Report 13531273 (Version 2)
Quarter: 2017Q2

REPORT INFORMATION
  Report Type: Spontaneous
  Country: US (occurrence: US)
  Receive Date: 20170510
  Receipt Date: 20170605
  Transmission Date: 20170830
  Serious: No
  Sender: FDA-Public Use
  Company Number: US-PFIZER INC-2017163743

PATIENT
  Age: 54 Year
  Sex: Male

DRUGS (5)
  1. TEGRETOL [Concomitant]
     Active Substance: CARBAMAZEPINE
     Dosage: 100 MG, 2X/DAY  (0.5 TABLET EVERY 12 HOURS)
     Route: 048
     Dates: start: 20170316
  2. LOVASTATIN. [Concomitant]
     Active Substance: LOVASTATIN
     Dosage: 20 MG, DAILY (EVERYDAY WITH EVENING MEAL)
     Route: 048
     Dates: start: 20170320
  3. LYRICA [Suspect]
     Active Substance: PREGABALIN
     Indication: AUTONOMIC NEUROPATHY
     Dosage: 75 MG, 2X/DAY
     Route: 048
     Dates: start: 20170410
  4. HUMULIN NOS [Concomitant]
     Active Substance: INSULIN HUMAN
     Dosage: 75 IU, DAILY (50 UNITS SQ IN AM, 25 UNITS IN PM)
     Route: 058
     Dates: start: 20170406
  5. LISINOPRIL. [Concomitant]
     Active Substance: LISINOPRIL
     Dosage: 10 MG, DAILY, (WITH THE EVENING MEAL)
     Route: 048
     Dates: start: 20170320

REACTIONS (2)
  - Diabetic neuropathy [Unknown]
  - Musculoskeletal discomfort [Unknown]

NARRATIVE: CASE EVENT DATE: 20170410
